FAERS Safety Report 6753955-4 (Version None)
Quarter: 2010Q2

REPORT INFORMATION
  Report Type: 
  Country: None (occurrence: None)
  Receive Date: 20100603
  Receipt Date: 20100527
  Transmission Date: 20101027
  Serious: Yes (Hospitalization)
  Sender: FDA-Public Use
  Company Number: A0861692A

PATIENT
  Age: 62 Year
  Sex: Female

DRUGS (9)
  1. LAMICTAL [Suspect]
     Dosage: 1TAB TWICE PER DAY
     Route: 048
  2. NEURONTIN [Concomitant]
  3. TOPAMAX [Concomitant]
  4. ZOLOFT [Concomitant]
  5. CRESTOR [Concomitant]
  6. REMERON [Concomitant]
  7. ASPIRIN [Concomitant]
  8. SPIRIVA [Concomitant]
  9. ATIVAN [Concomitant]

REACTIONS (2)
  - CONVULSION [None]
  - PNEUMONIA [None]
